FAERS Safety Report 23198203 (Version 1)
Quarter: 2023Q4

REPORT INFORMATION
  Report Type: Spontaneous
  Country: US (occurrence: None)
  Receive Date: 20231117
  Receipt Date: 20231117
  Transmission Date: 20240110
  Serious: Yes (Other)
  Sender: FDA-Public Use
  Company Number: US-USAntibiotics-000212

PATIENT

DRUGS (9)
  1. AUGMENTIN [Suspect]
     Active Substance: AMOXICILLIN\CLAVULANATE POTASSIUM
     Indication: Mycobacterium fortuitum infection
  2. MOXIFLOXACIN [Suspect]
     Active Substance: MOXIFLOXACIN
     Indication: Mycobacterium fortuitum infection
     Route: 048
  3. DOXYCYCLINE [Suspect]
     Active Substance: DOXYCYCLINE
     Indication: Mycobacterium fortuitum infection
  4. CLINDAMYCIN [Suspect]
     Active Substance: CLINDAMYCIN
     Indication: Mycobacterium fortuitum infection
  5. LEVAQUIN [Suspect]
     Active Substance: LEVOFLOXACIN
     Indication: Mycobacterium fortuitum infection
  6. BACTRIM [Suspect]
     Active Substance: SULFAMETHOXAZOLE\TRIMETHOPRIM
     Indication: Mycobacterium fortuitum infection
  7. IMIPENEM [Suspect]
     Active Substance: IMIPENEM
     Indication: Mycobacterium fortuitum infection
     Dates: start: 202201
  8. LINEZOLID [Suspect]
     Active Substance: LINEZOLID
     Indication: Mycobacterium fortuitum infection
     Route: 048
     Dates: start: 202201, end: 202202
  9. NUZYRA [Suspect]
     Active Substance: OMADACYCLINE
     Indication: Mycobacterium fortuitum infection

REACTIONS (12)
  - Nausea [Unknown]
  - Diarrhoea [Unknown]
  - Dizziness [Unknown]
  - Dry mouth [Unknown]
  - Hypoaesthesia [Unknown]
  - Skin mass [Unknown]
  - Lymphangitis [Unknown]
  - Cutaneous sporotrichosis [Unknown]
  - Disease progression [Unknown]
  - Poor quality sleep [Unknown]
  - Hepatic enzyme increased [Unknown]
  - Drug ineffective for unapproved indication [Unknown]
